FAERS Safety Report 6685213-0 (Version None)
Quarter: 2010Q2

REPORT INFORMATION
  Report Type: 
  Country: None (occurrence: None)
  Receive Date: 20100416
  Receipt Date: 20100312
  Transmission Date: 20101027
  Serious: Yes (Other)
  Sender: FDA-Public Use
  Company Number: US-BAXTER-2009BH017434

PATIENT
  Age: 34 Year
  Sex: Male
  Weight: 73 kg

DRUGS (55)
  1. HEPARIN SODIUM INJECTION [Suspect]
     Indication: THROMBOSIS PROPHYLAXIS
     Route: 065
     Dates: start: 20070911
  2. HEPARIN SODIUM INJECTION [Suspect]
     Indication: FISTULOGRAM
     Route: 065
     Dates: start: 20070911
  3. HEPARIN SODIUM INJECTION [Suspect]
     Route: 040
     Dates: start: 20080301
  4. HEPARIN SODIUM INJECTION [Suspect]
     Route: 040
     Dates: start: 20080301
  5. HEPARIN SODIUM INJECTION [Suspect]
     Route: 042
     Dates: start: 20080301
  6. HEPARIN SODIUM INJECTION [Suspect]
     Route: 042
     Dates: start: 20080301
  7. HEPARIN SODIUM INJECTION [Suspect]
     Route: 040
     Dates: start: 20080313
  8. HEPARIN SODIUM INJECTION [Suspect]
     Route: 040
     Dates: start: 20080313
  9. HEPARIN SODIUM INJECTION [Suspect]
     Route: 042
     Dates: start: 20080313
  10. HEPARIN SODIUM INJECTION [Suspect]
     Route: 042
     Dates: start: 20080313
  11. HEPARIN SODIUM INJECTION [Suspect]
     Route: 042
     Dates: start: 20080314
  12. HEPARIN SODIUM INJECTION [Suspect]
     Route: 042
     Dates: start: 20080314
  13. HEPARIN SODIUM INJECTION [Suspect]
     Route: 040
     Dates: start: 20080318
  14. HEPARIN SODIUM INJECTION [Suspect]
     Route: 040
     Dates: start: 20080318
  15. HEPARIN SODIUM INJECTION [Suspect]
     Route: 042
     Dates: start: 20080318
  16. HEPARIN SODIUM INJECTION [Suspect]
     Route: 042
     Dates: start: 20080318
  17. HEPARIN SODIUM INJECTION [Suspect]
     Route: 065
     Dates: start: 20080505
  18. HEPARIN SODIUM INJECTION [Suspect]
     Route: 065
     Dates: start: 20080505
  19. CLONIDINE [Concomitant]
     Indication: DRUG USE FOR UNKNOWN INDICATION
     Route: 065
  20. LISINOPRIL [Concomitant]
     Indication: DRUG USE FOR UNKNOWN INDICATION
     Route: 065
  21. NEPHROCAPS [Concomitant]
     Indication: DRUG USE FOR UNKNOWN INDICATION
     Route: 065
  22. IRON [Concomitant]
     Indication: DRUG USE FOR UNKNOWN INDICATION
     Route: 065
  23. EPOGEN [Concomitant]
     Indication: DRUG USE FOR UNKNOWN INDICATION
     Route: 065
  24. LOPRESSOR [Concomitant]
     Indication: DRUG USE FOR UNKNOWN INDICATION
     Route: 065
  25. FOSRENOL [Concomitant]
     Indication: DRUG USE FOR UNKNOWN INDICATION
     Route: 065
  26. SULAR [Concomitant]
     Indication: DRUG USE FOR UNKNOWN INDICATION
     Route: 065
  27. COZAAR [Concomitant]
     Indication: DRUG USE FOR UNKNOWN INDICATION
     Route: 065
  28. NEURONTIN [Concomitant]
     Indication: DRUG USE FOR UNKNOWN INDICATION
     Route: 065
  29. METOPROLOL TARTRATE [Concomitant]
     Indication: DRUG USE FOR UNKNOWN INDICATION
     Route: 065
  30. CLONAZEPAM [Concomitant]
     Indication: DRUG USE FOR UNKNOWN INDICATION
     Route: 048
  31. DILAUDID [Concomitant]
     Indication: DRUG USE FOR UNKNOWN INDICATION
     Route: 065
  32. XANAX [Concomitant]
     Indication: DRUG USE FOR UNKNOWN INDICATION
     Route: 065
  33. HYDRALAZINE HCL [Concomitant]
     Indication: DRUG USE FOR UNKNOWN INDICATION
     Route: 065
  34. EXCEDRIN (MIGRAINE) [Concomitant]
     Indication: DRUG USE FOR UNKNOWN INDICATION
     Route: 048
  35. MIDRIN [Concomitant]
     Indication: DRUG USE FOR UNKNOWN INDICATION
     Route: 048
  36. ASPIRIN [Concomitant]
     Indication: DRUG USE FOR UNKNOWN INDICATION
     Route: 065
  37. ERGOCALCIFEROL [Concomitant]
     Indication: DRUG USE FOR UNKNOWN INDICATION
     Route: 065
  38. PHOSLO [Concomitant]
     Indication: DRUG USE FOR UNKNOWN INDICATION
     Route: 065
  39. SEVELAMER [Concomitant]
     Indication: DRUG USE FOR UNKNOWN INDICATION
     Route: 065
  40. FIORICET [Concomitant]
     Indication: DRUG USE FOR UNKNOWN INDICATION
     Route: 065
  41. ZOLOFT [Concomitant]
     Indication: DRUG USE FOR UNKNOWN INDICATION
     Route: 065
  42. ASPIRIN [Concomitant]
     Indication: DRUG USE FOR UNKNOWN INDICATION
     Route: 065
  43. WELCHOL [Concomitant]
     Indication: DRUG USE FOR UNKNOWN INDICATION
     Route: 048
  44. NEBIVOLOL [Concomitant]
     Indication: DRUG USE FOR UNKNOWN INDICATION
     Route: 048
  45. NEURONTIN [Concomitant]
     Route: 048
  46. ULTRAM [Concomitant]
     Indication: DRUG USE FOR UNKNOWN INDICATION
     Route: 048
  47. TOPAMAX [Concomitant]
     Indication: DRUG USE FOR UNKNOWN INDICATION
     Route: 048
  48. MINOXIDIL [Concomitant]
     Indication: DRUG USE FOR UNKNOWN INDICATION
     Route: 048
  49. ULTRAM [Concomitant]
     Route: 048
  50. ZANTAC [Concomitant]
     Indication: DRUG USE FOR UNKNOWN INDICATION
     Route: 048
  51. NORVASK [Concomitant]
     Indication: DRUG USE FOR UNKNOWN INDICATION
     Route: 048
  52. HYDROMORPHONE HYDROCHLORIDE [Concomitant]
     Indication: DRUG USE FOR UNKNOWN INDICATION
     Route: 048
  53. LISINOPRIL [Concomitant]
     Route: 048
  54. FLEXERIL [Concomitant]
     Indication: DRUG USE FOR UNKNOWN INDICATION
     Route: 048
  55. DOXYCYCLINE HYCLATE [Concomitant]
     Indication: DRUG USE FOR UNKNOWN INDICATION
     Route: 048
     Dates: end: 20081212

REACTIONS (19)
  - BACK PAIN [None]
  - BLOOD PRESSURE FLUCTUATION [None]
  - COLITIS [None]
  - DIARRHOEA [None]
  - DIZZINESS [None]
  - DYSPNOEA [None]
  - FATIGUE [None]
  - FEELING HOT [None]
  - FLUSHING [None]
  - HEADACHE [None]
  - HYPERHIDROSIS [None]
  - LEUKOPENIA [None]
  - LOSS OF CONSCIOUSNESS [None]
  - LYMPHOCYTOSIS [None]
  - MUSCLE SPASMS [None]
  - PALLOR [None]
  - PYREXIA [None]
  - THROMBOCYTOPENIA [None]
  - VOMITING [None]
